FAERS Safety Report 6635114-9 (Version None)
Quarter: 2010Q1

REPORT INFORMATION
  Report Type: 
  Country: None (occurrence: None)
  Receive Date: 20100315
  Receipt Date: 20100304
  Transmission Date: 20100710
  Serious: Yes (Other)
  Sender: FDA-Public Use
  Company Number: PHHY2009CA54302

PATIENT
  Sex: Male

DRUGS (2)
  1. DIOVAN HCT [Suspect]
     Dosage: 160/25 MG DAILY
     Route: 048
     Dates: start: 20040101, end: 20100217
  2. NORVASC [Concomitant]
     Dosage: 5 MG, UNK

REACTIONS (7)
  - BLOOD POTASSIUM DECREASED [None]
  - BLOOD PRESSURE FLUCTUATION [None]
  - CONFUSIONAL STATE [None]
  - HEART RATE INCREASED [None]
  - MOVEMENT DISORDER [None]
  - PANIC ATTACK [None]
  - RESPIRATORY DISTRESS [None]
